FAERS Safety Report 4721345-1 (Version None)
Quarter: 2005Q3

REPORT INFORMATION
  Report Type: 
  Country: None (occurrence: None)
  Receive Date: 20050721
  Receipt Date: 20040708
  Transmission Date: 20060218
  Serious: Yes (Hospitalization)
  Sender: FDA-Public Use
  Company Number: US-BRISTOL-MYERS SQUIBB COMPANY-12635389

PATIENT
  Age: 83 Year
  Sex: Female
  Weight: 110 kg

DRUGS (5)
  1. COUMADIN [Suspect]
     Indication: CEREBROVASCULAR ACCIDENT
     Dosage: WAS RECEIVING 3MG QD; INCR TO 5MG ON 6/22/04; THEN 3 MG QD; INCR TO 10MG ON 7/6; THEN 6 MG QD
     Route: 048
  2. ALLOPURINOL [Concomitant]
  3. ZESTRIL [Concomitant]
  4. LASIX [Concomitant]
  5. SYNTHROID [Concomitant]

REACTIONS (1)
  - INTERNATIONAL NORMALISED RATIO DECREASED [None]
